FAERS Safety Report 9450037 (Version 2)
Quarter: 2013Q3

REPORT INFORMATION
  Report Type: Report from Study
  Country: US (occurrence: US)
  Receive Date: 20130809
  Receipt Date: 20130813
  Transmission Date: 20140515
  Serious: Yes (Death)
  Sender: FDA-Public Use
  Company Number: US-ROCHE-1259766

PATIENT
  Sex: Male
  Weight: 91.71 kg

DRUGS (3)
  1. RITUXAN [Suspect]
     Indication: PARAPROTEINAEMIA
     Dosage: *2
     Route: 042
     Dates: start: 20130416, end: 20130501
  2. RITUXAN [Suspect]
     Indication: CRYOGLOBULINAEMIA
  3. PREDNISONE [Concomitant]
     Indication: CRYOGLOBULINAEMIA

REACTIONS (1)
  - Renal failure [Fatal]
